FAERS Safety Report 16178037 (Version 1)
Quarter: 2019Q2

REPORT INFORMATION
  Report Type: Spontaneous
  Country: US (occurrence: US)
  Receive Date: 20190410
  Receipt Date: 20190410
  Transmission Date: 20190711
  Serious: Yes (Other)
  Sender: FDA-Public Use
  Company Number: US-SA-2019SA096447

PATIENT
  Age: 73 Year
  Sex: Female

DRUGS (1)
  1. PRALUENT [Suspect]
     Active Substance: ALIROCUMAB
     Indication: BLOOD CHOLESTEROL INCREASED
     Dosage: 75 MG, QOW
     Route: 058
     Dates: start: 201901

REACTIONS (5)
  - Carotid artery occlusion [Unknown]
  - Incorrect dose administered [Unknown]
  - Eye disorder [Unknown]
  - Vision blurred [Unknown]
  - Device issue [Unknown]

NARRATIVE: CASE EVENT DATE: 20190328
